FAERS Safety Report 13926656 (Version 1)
Quarter: 2017Q3

REPORT INFORMATION
  Report Type: Spontaneous
  Country: US (occurrence: None)
  Receive Date: 20170831
  Receipt Date: 20170831
  Transmission Date: 20171127
  Serious: Yes (Life-Threatening)
  Sender: FDA-Public Use
  Company Number: None

PATIENT
  Age: 83 Year
  Sex: Female
  Weight: 104.33 kg

DRUGS (9)
  1. VITAMIN D3 [Concomitant]
     Active Substance: CHOLECALCIFEROL
  2. NITROFURANTOIN MONO 100MG CAPS GENERIC FOR MACROBID 100 MG CAP [Suspect]
     Active Substance: NITROFURANTOIN\NITROFURANTOIN MONOHYDRATE
     Indication: CYSTITIS
     Dosage: DOSE (BLACK + YELLOW CAP) 1 CAP QD?FREQUENCY - BID X 2 WEEKS THEN Q AM
     Route: 048
     Dates: start: 20170523, end: 20170809
  3. LEVOTHYROXIN [Concomitant]
     Active Substance: LEVOTHYROXINE
  4. LOSARTAN. [Concomitant]
     Active Substance: LOSARTAN
  5. NITROFURANTOIN MONO 100MG CAPS GENERIC FOR MACROBID 100 MG CAP [Suspect]
     Active Substance: NITROFURANTOIN\NITROFURANTOIN MONOHYDRATE
     Indication: PROPHYLAXIS
     Dosage: DOSE (BLACK + YELLOW CAP) 1 CAP QD?FREQUENCY - BID X 2 WEEKS THEN Q AM
     Route: 048
     Dates: start: 20170523, end: 20170809
  6. FLEXERIL [Concomitant]
     Active Substance: CYCLOBENZAPRINE HYDROCHLORIDE
  7. CRANBERRY GEL [Concomitant]
  8. HCTZ [Concomitant]
     Active Substance: HYDROCHLOROTHIAZIDE
  9. PROBIOTIC [Concomitant]
     Active Substance: PROBIOTICS NOS

REACTIONS (1)
  - Purpura [None]

NARRATIVE: CASE EVENT DATE: 20170808
